FAERS Safety Report 6975315-3 (Version None)
Quarter: 2010Q3

REPORT INFORMATION
  Report Type: 
  Country: None (occurrence: None)
  Receive Date: 20100910
  Receipt Date: 20090225
  Transmission Date: 20110219
  Serious: No
  Sender: FDA-Public Use
  Company Number: US-WYE-H08367509

PATIENT
  Sex: Female
  Weight: 69.46 kg

DRUGS (6)
  1. PRISTIQ [Suspect]
     Indication: DEPRESSION
     Route: 048
     Dates: start: 20090224
  2. PRISTIQ [Suspect]
     Indication: ANXIETY
  3. LYRICA [Concomitant]
  4. TOPAMAX [Concomitant]
  5. DILTIAZEM HYDROCHLORIDE [Concomitant]
  6. PRAVASTATIN [Concomitant]

REACTIONS (7)
  - ANXIETY [None]
  - DIZZINESS [None]
  - FATIGUE [None]
  - FEELING HOT [None]
  - INSOMNIA [None]
  - NAUSEA [None]
  - UNEVALUABLE EVENT [None]
